FAERS Safety Report 23276266 (Version 1)
Quarter: 2023Q4

REPORT INFORMATION
  Report Type: Spontaneous
  Country: US (occurrence: US)
  Receive Date: 20231208
  Receipt Date: 20231208
  Transmission Date: 20240109
  Serious: No
  Sender: FDA-Public Use
  Company Number: US-Blueprint Medicines Corporation-SP-US-2023-001989

PATIENT
  Sex: Male

DRUGS (1)
  1. AYVAKIT [Suspect]
     Active Substance: AVAPRITINIB
     Indication: Systemic mastocytosis
     Route: 065
     Dates: start: 20230608

REACTIONS (5)
  - Ocular hyperaemia [Unknown]
  - Eye swelling [Unknown]
  - Nasopharyngitis [Unknown]
  - Blood bilirubin abnormal [Unknown]
  - Red blood cell count decreased [Unknown]
